FAERS Safety Report 8821109 (Version 3)
Quarter: 2012Q4

REPORT INFORMATION
  Report Type: 
  Country: JP (occurrence: JP)
  Receive Date: 20121002
  Receipt Date: 20121114
  Transmission Date: 20130627
  Serious: Yes (Hospitalization)
  Sender: FDA-Public Use
  Company Number: JP-GLAXOSMITHKLINE-B0830612A

PATIENT
  Age: 63 Year
  Sex: Female
  Weight: 62 kg

DRUGS (8)
  1. VALTREX [Suspect]
     Indication: HERPES ZOSTER
     Dosage: 1000MG Three times per day
     Route: 048
     Dates: start: 20120903, end: 20120905
  2. TRYPTANOL [Concomitant]
     Indication: PAIN
     Dosage: 10MG Per day
     Route: 048
     Dates: start: 20120703, end: 20120904
  3. MUCOSTA [Concomitant]
     Indication: GASTRITIS
     Dosage: 100MG Three times per day
     Route: 048
     Dates: start: 20120703, end: 20120904
  4. LOXONIN [Concomitant]
     Indication: PAIN
     Dosage: 100MG Three times per day
     Route: 048
     Dates: start: 20120903, end: 20120904
  5. PRAVAMATE [Concomitant]
     Indication: HYPERLIPIDAEMIA
     Dosage: 5MG Per day
     Route: 048
     Dates: start: 2004, end: 20120905
  6. VOGLIBOSE [Concomitant]
     Indication: DIABETES MELLITUS
     Dosage: .2MG Three times per day
     Route: 048
     Dates: start: 2004, end: 20120905
  7. METGLUCO [Concomitant]
     Indication: DIABETES MELLITUS
     Dosage: 250MG Three times per day
     Route: 048
     Dates: start: 20120509, end: 20120905
  8. PRIMPERAN [Concomitant]
     Indication: NAUSEA
     Dosage: 5MG Three times per day
     Route: 048
     Dates: start: 20120905, end: 20120909

REACTIONS (8)
  - Renal failure acute [Recovered/Resolved]
  - Blood urea increased [Unknown]
  - Blood creatinine increased [Unknown]
  - Blood uric acid increased [Unknown]
  - Glomerular filtration rate decreased [Unknown]
  - Nausea [Recovering/Resolving]
  - Vomiting [Recovering/Resolving]
  - Hypophagia [Recovering/Resolving]
